FAERS Safety Report 6730613-3 (Version None)
Quarter: 2010Q2

REPORT INFORMATION
  Report Type: 
  Country: None (occurrence: None)
  Receive Date: 20100514
  Receipt Date: 20100503
  Transmission Date: 20101027
  Serious: Yes (Hospitalization)
  Sender: FDA-Public Use
  Company Number: 011430

PATIENT
  Sex: Male
  Weight: 84 kg

DRUGS (3)
  1. CERTOLIZUMAB PEGOL (CERTOLIZUMAB PEGOL) [Suspect]
     Indication: RHEUMATOID ARTHRITIS
     Dosage: SEE IMAGE
     Route: 058
     Dates: start: 20050824, end: 20060809
  2. CERTOLIZUMAB PEGOL (CERTOLIZUMAB PEGOL) [Suspect]
     Indication: RHEUMATOID ARTHRITIS
     Dosage: SEE IMAGE
     Route: 058
     Dates: start: 20060823, end: 20071128
  3. CERTOLIZUMAB PEGOL (CERTOLIZUMAB PEGOL) [Suspect]
     Indication: RHEUMATOID ARTHRITIS
     Dosage: SEE IMAGE
     Route: 058
     Dates: start: 20071217, end: 20100428

REACTIONS (9)
  - ABDOMINAL PAIN [None]
  - FLANK PAIN [None]
  - GASTROENTERITIS [None]
  - LOBAR PNEUMONIA [None]
  - LOWER LIMB FRACTURE [None]
  - MYOCARDIAL ISCHAEMIA [None]
  - OPEN FRACTURE [None]
  - PURULENT DISCHARGE [None]
  - WOUND SECRETION [None]
